FAERS Safety Report 5683232-4 (Version None)
Quarter: 2008Q1

REPORT INFORMATION
  Report Type: 
  Country: None (occurrence: None)
  Receive Date: 20080326
  Receipt Date: 20080320
  Transmission Date: 20080703
  Serious: Yes (Death)
  Sender: FDA-Public Use
  Company Number: 163-21880-08010822

PATIENT
  Age: 78 Year
  Sex: Male

DRUGS (1)
  1. REVLIMID [Suspect]
     Indication: MULTIPLE MYELOMA
     Dosage: 10 MG, 1 IN 1 D, ORAL
     Route: 048
     Dates: start: 20071226

REACTIONS (4)
  - BONE MARROW FAILURE [None]
  - MYELODYSPLASTIC SYNDROME [None]
  - PNEUMONIA [None]
  - PULMONARY HAEMORRHAGE [None]
